FAERS Safety Report 20822775 (Version 1)
Quarter: 2022Q2

REPORT INFORMATION
  Report Type: Spontaneous
  Country: US (occurrence: US)
  Receive Date: 20220512
  Receipt Date: 20220512
  Transmission Date: 20220721
  Serious: Yes (Hospitalization)
  Sender: FDA-Public Use
  Company Number: US-LUNDBECK-DKLU3047900

PATIENT
  Age: 48 Year
  Sex: Female

DRUGS (1)
  1. ONFI [Suspect]
     Active Substance: CLOBAZAM
     Indication: Epilepsy
     Route: 065
     Dates: start: 2016

REACTIONS (2)
  - Thermal burn [Unknown]
  - Seizure [Unknown]

NARRATIVE: CASE EVENT DATE: 20220414
